FAERS Safety Report 24098347 (Version 1)
Quarter: 2024Q3

REPORT INFORMATION
  Report Type: Spontaneous
  Country: DE (occurrence: DE)
  Receive Date: 20240716
  Receipt Date: 20240716
  Transmission Date: 20241016
  Serious: Yes (Other)
  Sender: GILEAD
  Company Number: DE-PEI-202400015285

PATIENT
  Age: 56 Year
  Sex: Male

DRUGS (1)
  1. TECARTUS [Suspect]
     Active Substance: BREXUCABTAGENE AUTOLEUCEL
     Indication: Mantle cell lymphoma
     Route: 042
     Dates: start: 20240430

REACTIONS (1)
  - Neuroendocrine carcinoma [Unknown]

NARRATIVE: CASE EVENT DATE: 20240705
